FAERS Safety Report 17996489 (Version 1)
Quarter: 2020Q3

REPORT INFORMATION
  Report Type: Spontaneous
  Country: US (occurrence: US)
  Receive Date: 20200708
  Receipt Date: 20200708
  Transmission Date: 20201103
  Serious: No
  Sender: FDA-Public Use
  Company Number: US-TAKEDA-2020TUS029279

PATIENT
  Sex: Male

DRUGS (3)
  1. TRINTELLIX [Suspect]
     Active Substance: VORTIOXETINE HYDROBROMIDE
     Indication: ATTENTION DEFICIT HYPERACTIVITY DISORDER
  2. TRINTELLIX [Suspect]
     Active Substance: VORTIOXETINE HYDROBROMIDE
     Indication: INJURY
  3. TRINTELLIX [Suspect]
     Active Substance: VORTIOXETINE HYDROBROMIDE
     Indication: ANXIETY
     Dosage: 20 MILLIGRAM
     Route: 065

REACTIONS (18)
  - Anxiety [Unknown]
  - Dry mouth [Unknown]
  - Disturbance in attention [Unknown]
  - Frustration tolerance decreased [Unknown]
  - Headache [Unknown]
  - Photosensitivity reaction [Unknown]
  - Emotional disorder [Unknown]
  - Speech disorder [Unknown]
  - Product use in unapproved indication [Unknown]
  - Abnormal faeces [Unknown]
  - Balance disorder [Unknown]
  - Feeling abnormal [Unknown]
  - Muscle tightness [Unknown]
  - Back pain [Unknown]
  - Dizziness [Unknown]
  - Diarrhoea [Unknown]
  - Chest pain [Unknown]
  - Anger [Unknown]
